FAERS Safety Report 9466830 (Version 2)
Quarter: 2014Q1

REPORT INFORMATION
  Report Type: Spontaneous
  Country: US (occurrence: US)
  Receive Date: 20130820
  Receipt Date: 20140219
  Transmission Date: 20141002
  Serious: Yes (Hospitalization)
  Sender: FDA-Public Use
  Company Number: US-INCYTE CORPORATION-2013IN001863

PATIENT
  Age: 65 Year
  Sex: Female
  Weight: 63.49 kg

DRUGS (5)
  1. JAKAFI [Suspect]
     Indication: BLOOD DISORDER
     Dosage: 15 MG, BID
     Route: 048
     Dates: start: 201112, end: 201311
  2. FLUOXETINE HCL [Concomitant]
  3. PERCOCET [Concomitant]
  4. MORPHINE SULFATE [Concomitant]
  5. EXJADE [Concomitant]
     Indication: BLOOD DISORDER
     Dosage: 250 MG, QD
     Dates: start: 201308

REACTIONS (7)
  - Leukaemia [Unknown]
  - Vomiting [Unknown]
  - Diarrhoea [Unknown]
  - Central venous catheterisation [Unknown]
  - Chemotherapy [Unknown]
  - Transfusion [Unknown]
  - Night sweats [Unknown]
